FAERS Safety Report 4548288-0 (Version None)
Quarter: 2004Q4

REPORT INFORMATION
  Report Type: 
  Country: None (occurrence: None)
  Receive Date: 20041220
  Receipt Date: 20041014
  Transmission Date: 20050328
  Serious: Yes (Congenital Anomaly)
  Sender: FDA-Public Use
  Company Number: US_0410106991

PATIENT
  Age: 7 Year
  Sex: Male
  Weight: 2 kg

DRUGS (2)
  1. HUMULIN N [Suspect]
     Dates: start: 19960101
  2. HUMULIN R [Suspect]
     Dates: start: 19960101

REACTIONS (1)
  - HAEMANGIOMA CONGENITAL [None]
